FAERS Safety Report 24737084 (Version 1)
Quarter: 2024Q4

REPORT INFORMATION
  Report Type: Other
  Country: IN (occurrence: IN)
  Receive Date: 20241216
  Receipt Date: 20241216
  Transmission Date: 20250115
  Serious: Yes (Death, Hospitalization, Other)
  Sender: ANI
  Company Number: IN-ANIPHARMA-014032

PATIENT
  Age: 8 Month

DRUGS (2)
  1. CYCLOPHOSPHAMIDE [Suspect]
     Active Substance: CYCLOPHOSPHAMIDE
     Indication: Bone marrow conditioning regimen
  2. FLUDARABINE [Concomitant]
     Active Substance: FLUDARABINE PHOSPHATE
     Indication: Bone marrow conditioning regimen

REACTIONS (1)
  - Cytokine release syndrome [Fatal]
